FAERS Safety Report 15847263 (Version 15)
Quarter: 2023Q1

REPORT INFORMATION
  Report Type: Other
  Country: DE (occurrence: DE)
  Receive Date: 20190121
  Receipt Date: 20230221
  Transmission Date: 20230418
  Serious: Yes (Hospitalization, Other)
  Sender: FDA-Public Use
  Company Number: DE-ROCHE-2141062

PATIENT
  Age: 50 Year
  Sex: Female
  Weight: 49 kg

DRUGS (16)
  1. COMIRNATY [Suspect]
     Active Substance: TOZINAMERAN
     Indication: COVID-19 immunisation
     Route: 065
     Dates: start: 20210529
  2. COMIRNATY [Suspect]
     Active Substance: TOZINAMERAN
     Route: 065
     Dates: start: 20210610
  3. DALFAMPRIDINE [Suspect]
     Active Substance: DALFAMPRIDINE
     Indication: Gait disturbance
     Dosage: 1-0-1
     Route: 065
  4. OCREVUS [Suspect]
     Active Substance: OCRELIZUMAB
     Indication: Relapsing-remitting multiple sclerosis
     Dosage: 6TH INFUSION
     Route: 042
     Dates: start: 20200722
  5. OCREVUS [Suspect]
     Active Substance: OCRELIZUMAB
     Dosage: 5TH INFUSION
     Route: 042
     Dates: start: 20200123
  6. OCREVUS [Suspect]
     Active Substance: OCRELIZUMAB
     Dosage: 300 MG (FREQUENCY NOT REPORTED) THEN 600 MG ONCE IN 210 DAYS
     Route: 042
     Dates: start: 20180613
  7. OCREVUS [Suspect]
     Active Substance: OCRELIZUMAB
     Dosage: 6TH INFUSION
     Route: 042
     Dates: start: 20210113
  8. OCREVUS [Suspect]
     Active Substance: OCRELIZUMAB
     Route: 042
  9. OCREVUS [Suspect]
     Active Substance: OCRELIZUMAB
     Route: 042
     Dates: start: 20180613
  10. NATALIZUMAB [Suspect]
     Active Substance: NATALIZUMAB
     Indication: Product used for unknown indication
     Route: 065
  11. CHOLECALCIFEROL [Concomitant]
     Active Substance: CHOLECALCIFEROL
  12. MIRTAZAPINE [Concomitant]
     Active Substance: MIRTAZAPINE
     Dosage: 0-0-1
  13. MIRTAZAPINE [Concomitant]
     Active Substance: MIRTAZAPINE
     Dosage: 0-0-1; EITHER 3.75 MG OR 1.875 MG
  14. MIRTAZAPINE [Concomitant]
     Active Substance: MIRTAZAPINE
     Dosage: 0-0-1
  15. PREDNISONE [Concomitant]
     Active Substance: PREDNISONE
  16. DIMETHINDENE [Concomitant]
     Active Substance: DIMETHINDENE

REACTIONS (24)
  - Suicidal ideation [Recovered/Resolved]
  - Uterine prolapse [Recovered/Resolved]
  - Depressed mood [Recovered/Resolved]
  - Fear of falling [Recovered/Resolved]
  - Feeling hot [Recovered/Resolved]
  - Fatigue [Recovered/Resolved]
  - Dermal absorption impaired [Recovered/Resolved]
  - Fluid retention [Recovered/Resolved]
  - Agitation [Recovered/Resolved]
  - Body temperature increased [Recovered/Resolved]
  - Gastrointestinal infection [Recovered/Resolved]
  - Limb discomfort [Recovered/Resolved]
  - Initial insomnia [Recovered/Resolved]
  - Hot flush [Recovered/Resolved]
  - Cyst [Not Recovered/Not Resolved]
  - Drug ineffective [Unknown]
  - Paraesthesia [Recovered/Resolved]
  - Fatigue [Recovered/Resolved]
  - Malaise [Recovered/Resolved]
  - Sluggishness [Recovered/Resolved]
  - Uhthoff^s phenomenon [Recovered/Resolved]
  - Gait disturbance [Recovered/Resolved]
  - COVID-19 [Recovered/Resolved]
  - Gastrointestinal infection [Recovered/Resolved]

NARRATIVE: CASE EVENT DATE: 20180613
